FAERS Safety Report 11965104 (Version 5)
Quarter: 2016Q4

REPORT INFORMATION
  Report Type: Spontaneous
  Country: US (occurrence: US)
  Receive Date: 20160127
  Receipt Date: 20161031
  Transmission Date: 20170206
  Serious: Yes (Hospitalization, Other)
  Sender: FDA-Public Use
  Company Number: US-ELI_LILLY_AND_COMPANY-US201601008986

PATIENT
  Age: 45 Year
  Sex: Male
  Weight: 131 kg

DRUGS (15)
  1. METFORMIN [Concomitant]
     Active Substance: METFORMIN HYDROCHLORIDE
     Dosage: 1000 MG, BID
  2. CODEINE W/PROMETHAZINE [Concomitant]
  3. FLEXERIL [Concomitant]
     Active Substance: CYCLOBENZAPRINE HYDROCHLORIDE
  4. LASIX [Concomitant]
     Active Substance: FUROSEMIDE
     Dosage: 40 MG, QD
  5. ATORVASTATIN [Concomitant]
     Active Substance: ATORVASTATIN
  6. PLAVIX [Concomitant]
     Active Substance: CLOPIDOGREL BISULFATE
  7. LISINOPRIL. [Concomitant]
     Active Substance: LISINOPRIL
     Dosage: 5 MG, QD
  8. NAPROSYN [Concomitant]
     Active Substance: NAPROXEN
     Dosage: UNK, PRN
  9. HYDROCODONE BITARTRATE AND ACETAMINOPHEN [Concomitant]
     Active Substance: ACETAMINOPHEN\HYDROCODONE BITARTRATE
  10. ASPIRIN                            /00002701/ [Concomitant]
     Active Substance: ASPIRIN
  11. CARVEDILOL. [Concomitant]
     Active Substance: CARVEDILOL
  12. K-DUR [Concomitant]
     Active Substance: POTASSIUM CHLORIDE
     Dosage: 2 MEQ, QD
  13. AXIRON [Suspect]
     Active Substance: TESTOSTERONE
     Indication: BLOOD TESTOSTERONE DECREASED
     Dosage: UNK UNK, BID
     Route: 065
     Dates: start: 20110823, end: 2015
  14. PROAIR HFA [Concomitant]
     Active Substance: ALBUTEROL SULFATE
  15. ISOSORBIDE DINITRATE. [Concomitant]
     Active Substance: ISOSORBIDE DINITRATE
     Dosage: 20 MG, TID

REACTIONS (3)
  - Chest pain [Recovered/Resolved]
  - Angina unstable [Unknown]
  - Chest pain [Unknown]

NARRATIVE: CASE EVENT DATE: 20120327
